FAERS Safety Report 19251511 (Version 2)
Quarter: 2021Q2

REPORT INFORMATION
  Report Type: Spontaneous
  Country: US (occurrence: US)
  Receive Date: 20210512
  Receipt Date: 20210517
  Transmission Date: 20210717
  Serious: Yes (Life-Threatening, Hospitalization, Other)
  Sender: FDA-Public Use
  Company Number: US-GLAXOSMITHKLINE-USCH2021GSK025815

PATIENT
  Age: 42 Year
  Sex: Male

DRUGS (4)
  1. ROBITUSSIN (DEXTROMETHORPHAN HYDROBROMIDE) [Suspect]
     Active Substance: DEXTROMETHORPHAN HYDROBROMIDE
     Dosage: 125 MG, Z (5 CUP)
     Route: 048
  2. ROBITUSSIN (DEXTROMETHORPHAN HYDROBROMIDE) [Suspect]
     Active Substance: DEXTROMETHORPHAN HYDROBROMIDE
     Indication: COUGH
     Dosage: 25 MG, Z (1 CUP)
     Route: 048
  3. ROBITUSSIN (DEXTROMETHORPHAN HYDROBROMIDE) [Suspect]
     Active Substance: DEXTROMETHORPHAN HYDROBROMIDE
     Dosage: 75 MG, Z (3 CUP)
     Route: 048
  4. TRIAMCINOLONE TOPICAL [Concomitant]
     Indication: PSORIASIS
     Dosage: UNK
     Route: 061

REACTIONS (10)
  - Sleep terror [Recovered/Resolved]
  - Neck injury [Recovered/Resolved]
  - Parasomnia [Recovered/Resolved]
  - Fear [Recovered/Resolved]
  - Altered state of consciousness [Recovered/Resolved]
  - Nightmare [Recovered/Resolved]
  - Aggression [Recovered/Resolved]
  - Suicide attempt [Recovered/Resolved]
  - Intentional product misuse [Unknown]
  - Toxicity to various agents [Recovered/Resolved]
